FAERS Safety Report 5903129-1 (Version None)
Quarter: 2008Q3

REPORT INFORMATION
  Report Type: 
  Country: None (occurrence: None)
  Receive Date: 20080930
  Receipt Date: 20080929
  Transmission Date: 20090109
  Serious: Yes (Hospitalization)
  Sender: FDA-Public Use
  Company Number: PHHO2003ES13805

PATIENT
  Sex: Female
  Weight: 53 kg

DRUGS (4)
  1. NEORAL [Interacting]
     Indication: LUNG TRANSPLANT
     Dosage: 200 MG, BID
     Route: 048
     Dates: start: 20031002, end: 20031025
  2. PLACEBO PLACEBO [Suspect]
     Indication: LUNG TRANSPLANT
     Dosage: PLACEBO
     Route: 042
     Dates: start: 20030918, end: 20030918
  3. PLACEBO PLACEBO [Suspect]
     Dosage: 20 MG, (DAY 4)
     Route: 042
     Dates: start: 20030922, end: 20030922
  4. CIPROFLOXACIN [Interacting]
     Dosage: 500 MG, BID
     Route: 048
     Dates: start: 20031014, end: 20031024

REACTIONS (4)
  - DRUG INTERACTION [None]
  - DRUG LEVEL INCREASED [None]
  - GASTROINTESTINAL DISORDER [None]
  - VOMITING [None]
